FAERS Safety Report 8463673-2 (Version None)
Quarter: 2012Q2

REPORT INFORMATION
  Report Type: 
  Country: None (occurrence: None)
  Receive Date: 20120625
  Receipt Date: 20120612
  Transmission Date: 20120825
  Serious: Yes (Death, Disabling, Other)
  Sender: FDA-Public Use
  Company Number: GB-CELGENEUS-167-50794-12051366

PATIENT
  Sex: Female

DRUGS (1)
  1. VIDAZA [Suspect]
     Dosage: 75 MILLIGRAM/SQ. METER
     Route: 065
     Dates: start: 20110701

REACTIONS (4)
  - DEATH [None]
  - MYELODYSPLASTIC SYNDROME TRANSFORMATION [None]
  - NEUROPATHY PERIPHERAL [None]
  - ACUTE MYELOID LEUKAEMIA [None]
